FAERS Safety Report 10196573 (Version 3)
Quarter: 2014Q3

REPORT INFORMATION
  Report Type: Spontaneous
  Country: ES (occurrence: ES)
  Receive Date: 20140527
  Receipt Date: 20140701
  Transmission Date: 20150326
  Serious: Yes (Life-Threatening, Hospitalization)
  Sender: FDA-Public Use
  Company Number: ES-VERTEX PHARMACEUTICALS INC-000000000000001252

PATIENT
  Age: 62 Year
  Sex: Female

DRUGS (3)
  1. INCIVO [Suspect]
     Active Substance: TELAPREVIR
     Indication: HEPATITIS C
     Dosage: 2250 MG, QD
     Route: 048
     Dates: start: 20120305, end: 20120503
  2. RIBAVIRINE [Concomitant]
     Active Substance: RIBAVIRIN
     Indication: HEPATITIS C
     Dosage: UNK
     Route: 048
     Dates: start: 20120305, end: 20120503
  3. PEGASYS [Concomitant]
     Active Substance: PEGINTERFERON ALFA-2A
     Indication: HEPATITIS C
     Dosage: 180 ?G, QW
     Route: 058

REACTIONS (2)
  - Renal failure acute [Recovering/Resolving]
  - Pancreatitis acute [Recovered/Resolved]

NARRATIVE: CASE EVENT DATE: 20120503
